FAERS Safety Report 7179868-4 (Version None)
Quarter: 2010Q4

REPORT INFORMATION
  Report Type: 
  Country: None (occurrence: None)
  Receive Date: 20101221
  Receipt Date: 20101212
  Transmission Date: 20110411
  Serious: Yes (Other)
  Sender: FDA-Public Use
  Company Number: GR-JNJFOC-20101204909

PATIENT
  Sex: Female

DRUGS (2)
  1. INVEGA [Suspect]
     Indication: SCHIZOPHRENIA
     Route: 048
  2. SEROXAT [Concomitant]
     Indication: SCHIZOPHRENIA
     Route: 048

REACTIONS (3)
  - DYSPNOEA [None]
  - LARYNGEAL OEDEMA [None]
  - TONGUE OEDEMA [None]
